FAERS Safety Report 6368707-7 (Version None)
Quarter: 2009Q3

REPORT INFORMATION
  Report Type: 
  Country: None (occurrence: None)
  Receive Date: 20090922
  Receipt Date: 20090909
  Transmission Date: 20100115
  Serious: No
  Sender: FDA-Public Use
  Company Number: US-B.I. PHARMACEUTICALS,INC./RIDGEFIELD-2009-BP-09727BP

PATIENT
  Sex: Female

DRUGS (8)
  1. SPIRIVA [Suspect]
     Indication: CHRONIC OBSTRUCTIVE PULMONARY DISEASE
     Dosage: 18 MCG
     Route: 055
     Dates: start: 20080301
  2. PRAVASTATIN [Concomitant]
     Indication: BLOOD CHOLESTEROL INCREASED
  3. HYDROXYZINE HCL [Concomitant]
     Indication: SLEEP DISORDER
  4. CELEXA [Concomitant]
     Indication: DEPRESSION
  5. RISPERIDONE [Concomitant]
     Indication: HALLUCINATION, VISUAL
  6. NAMENDA [Concomitant]
     Indication: DEMENTIA ALZHEIMER'S TYPE
  7. PRILOSEC [Concomitant]
     Indication: GASTROOESOPHAGEAL REFLUX DISEASE
  8. CEREFOLINE NAC [Concomitant]
     Indication: VITAMIN SUPPLEMENTATION

REACTIONS (1)
  - RESPIRATORY TRACT CONGESTION [None]
